FAERS Safety Report 5963299-6 (Version None)
Quarter: 2008Q4

REPORT INFORMATION
  Report Type: 
  Country: None (occurrence: None)
  Receive Date: 20081119
  Receipt Date: 20080904
  Transmission Date: 20090506
  Serious: No
  Sender: FDA-Public Use
  Company Number: WAES 0809USA00771

PATIENT
  Age: 55 Year
  Sex: Female

DRUGS (5)
  1. JANUVIA [Suspect]
     Indication: DIABETES MELLITUS
     Dosage: 50 MG/DAILY/PO
     Route: 048
     Dates: start: 20080903, end: 20080904
  2. MIRAPEX [Concomitant]
  3. PREVACID [Concomitant]
  4. PRINIVIL [Concomitant]
  5. METFORMIN HCL [Concomitant]

REACTIONS (6)
  - DIZZINESS [None]
  - ERYTHEMA [None]
  - FATIGUE [None]
  - NAUSEA [None]
  - RASH [None]
  - SWELLING [None]
